FAERS Safety Report 9005403 (Version 3)
Quarter: 2013Q1

REPORT INFORMATION
  Report Type: Spontaneous
  Country: BR (occurrence: BR)
  Receive Date: 20130108
  Receipt Date: 20130115
  Transmission Date: 20140127
  Serious: Yes (Other)
  Sender: FDA-Public Use
  Company Number: BR-SANOFI-AVENTIS-2013SA000847

PATIENT
  Age: 14 Year
  Sex: Female

DRUGS (2)
  1. LANTUS [Suspect]
     Indication: DIABETES MELLITUS
     Route: 058
     Dates: start: 2010
  2. INSULIN [Concomitant]
     Indication: DIABETES MELLITUS

REACTIONS (6)
  - Convulsion [Unknown]
  - Gait disturbance [Unknown]
  - Speech disorder [Unknown]
  - Fall [Unknown]
  - Hypoglycaemia [Unknown]
  - Blood glucose abnormal [Unknown]
